FAERS Safety Report 6749864-7 (Version None)
Quarter: 2010Q2

REPORT INFORMATION
  Report Type: 
  Country: None (occurrence: None)
  Receive Date: 20100601
  Receipt Date: 20100526
  Transmission Date: 20101027
  Serious: Yes (Hospitalization)
  Sender: FDA-Public Use
  Company Number: US-JNJFOC-20100510917

PATIENT
  Age: 35 Year
  Sex: Male
  Weight: 122.47 kg

DRUGS (2)
  1. TRAMADOL [Suspect]
     Indication: PAIN
     Route: 065
  2. UNKNOWN MEDICATION [Concomitant]
     Indication: FLUID RETENTION
     Route: 065

REACTIONS (1)
  - PERICARDIAL EFFUSION [None]
